FAERS Safety Report 9249097 (Version 1)
Quarter: 2013Q2

REPORT INFORMATION
  Report Type: Spontaneous
  Country: DE (occurrence: DE)
  Receive Date: 20130423
  Receipt Date: 20130423
  Transmission Date: 20140414
  Serious: Yes (Death, Other)
  Sender: FDA-Public Use
  Company Number: DE-ELI_LILLY_AND_COMPANY-DE201304004472

PATIENT
  Age: 91 Year
  Sex: Female

DRUGS (18)
  1. ZYPREXA [Suspect]
     Indication: DELIRIUM
     Dosage: 5 MG, QD
     Route: 048
     Dates: start: 20120917, end: 20120920
  2. ZYPREXA [Suspect]
     Dosage: 10 MG, QD
     Route: 048
     Dates: start: 20120921
  3. TRUXAL [Concomitant]
     Dosage: 40 MG, UNK
     Route: 048
     Dates: start: 20120915, end: 20120921
  4. TRUXAL [Concomitant]
     Dosage: 60 MG, QD
     Route: 048
     Dates: start: 20120922
  5. TAVOR [Concomitant]
     Dosage: 3 MG, QD
     Route: 048
     Dates: start: 20120914, end: 20120919
  6. TAVOR [Concomitant]
     Dosage: 2 MG, QD
     Route: 048
     Dates: start: 20120920, end: 20120922
  7. RAMIPRIL [Concomitant]
     Dosage: 2.5 MG, QD
     Route: 048
  8. FUROSEMIDE [Concomitant]
     Dosage: 80 MG, QD
     Route: 048
     Dates: end: 20120911
  9. FUROSEMIDE [Concomitant]
     Dosage: 120 MG, QD
     Route: 048
     Dates: start: 20120912
  10. BISOPROLOL [Concomitant]
     Dosage: 2.5 MG, QD
     Route: 048
     Dates: end: 20120913
  11. BISOPROLOL [Concomitant]
     Dosage: 5 MG, QD
     Route: 048
     Dates: start: 20120914
  12. ALLOPURINOL [Concomitant]
     Dosage: 150 MG, QD
     Route: 048
  13. OMEPRAZOL [Concomitant]
     Dosage: 20 MG, QD
     Route: 048
     Dates: end: 20120911
  14. PANTOPRAZOLE [Concomitant]
     Dosage: 20 MG, QD
     Route: 048
     Dates: start: 20120912
  15. METAMIZOLE [Concomitant]
     Dosage: 1500 MG, QD
     Route: 048
  16. ASS [Concomitant]
     Dosage: 100 MG, UNK
  17. INSULIN [Concomitant]
     Dosage: 18 IU, QD
     Route: 058
  18. CIPROFLOXACIN [Concomitant]
     Indication: INFECTION
     Dosage: 500 MG, QD
     Route: 048
     Dates: start: 20120914

REACTIONS (7)
  - Death [Fatal]
  - Left ventricular failure [Unknown]
  - Tachycardia [Unknown]
  - Depressed level of consciousness [Unknown]
  - Apnoea [Unknown]
  - Hypopnoea [Unknown]
  - Off label use [Unknown]
